FAERS Safety Report 6329652-6 (Version None)
Quarter: 2009Q3

REPORT INFORMATION
  Report Type: 
  Country: None (occurrence: None)
  Receive Date: 20090826
  Receipt Date: 20090824
  Transmission Date: 20100115
  Serious: Yes (Hospitalization)
  Sender: FDA-Public Use
  Company Number: US-BRISTOL-MYERS SQUIBB COMPANY-14751366

PATIENT
  Age: 76 Year
  Sex: Male
  Weight: 73 kg

DRUGS (3)
  1. METFORMIN HCL [Suspect]
     Dates: start: 20090815
  2. JANUMET [Suspect]
  3. ZOCOR [Concomitant]

REACTIONS (1)
  - INTESTINAL OBSTRUCTION [None]
